FAERS Safety Report 22206188 (Version 1)
Quarter: 2023Q2

REPORT INFORMATION
  Report Type: Spontaneous
  Country: IT (occurrence: IT)
  Receive Date: 20230413
  Receipt Date: 20230413
  Transmission Date: 20230721
  Serious: Yes (Hospitalization)
  Sender: FDA-Public Use
  Company Number: None

PATIENT
  Age: 58 Year
  Sex: Male
  Weight: 69 kg

DRUGS (1)
  1. METFORMIN [Suspect]
     Active Substance: METFORMIN HYDROCHLORIDE
     Indication: Diabetes mellitus
     Dosage: 500 MILLIGRAM DAILY;
     Route: 065

REACTIONS (2)
  - Vitamin B12 decreased [Not Recovered/Not Resolved]
  - Pernicious anaemia [Not Recovered/Not Resolved]

NARRATIVE: CASE EVENT DATE: 20230201
